FAERS Safety Report 11026263 (Version 1)
Quarter: 2015Q2

REPORT INFORMATION
  Report Type: Spontaneous
  Country: US (occurrence: None)
  Receive Date: 20150413
  Receipt Date: 20150413
  Transmission Date: 20150821
  Serious: Yes (Other)
  Sender: FDA-Public Use
  Company Number: None

PATIENT
  Age: 73 Year
  Sex: Female
  Weight: 63.5 kg

DRUGS (14)
  1. LOVASTATIN. [Concomitant]
     Active Substance: LOVASTATIN
  2. CALCIUM [Concomitant]
     Active Substance: CALCIUM
  3. LEVOTHYROXIN [Concomitant]
     Active Substance: LEVOTHYROXINE
  4. MULTI-VITAMIN [Concomitant]
     Active Substance: .ALPHA.-TOCOPHEROL ACETATE, DL-\ASCORBIC ACID\CYANOCOBALAMIN\FLUORIDE ION\FOLIC ACID\NIACIN\PYRIDOXINE\RIBOFLAVIN\THIAMINE\VITAMIN A\VITAMIN D
  5. METAMUCIL POWDER [Concomitant]
  6. HYDROCORISOE [Concomitant]
  7. METROPROLOL SUCCINATE [Concomitant]
  8. CALCIUM [Concomitant]
     Active Substance: CALCIUM
  9. MULTIVAMIN [Concomitant]
  10. METAMUCIL [Concomitant]
     Active Substance: PLANTAGO SEED
  11. TARCEVA [Suspect]
     Active Substance: ERLOTINIB HYDROCHLORIDE
     Indication: NON-SMALL CELL LUNG CANCER
     Dosage: 1 TABLET
     Route: 048
     Dates: start: 20131105, end: 20150410
  12. TARCEVA [Suspect]
     Active Substance: ERLOTINIB HYDROCHLORIDE
     Indication: METASTATIC NEOPLASM
     Dosage: 1 TABLET
     Route: 048
     Dates: start: 20131105, end: 20150410
  13. XGEVA [Concomitant]
     Active Substance: DENOSUMAB
  14. DOFETILIDE [Concomitant]
     Active Substance: DOFETILIDE

REACTIONS (5)
  - Rash generalised [None]
  - Wound secretion [None]
  - Pain of skin [None]
  - Purpura [None]
  - Skin exfoliation [None]

NARRATIVE: CASE EVENT DATE: 20150410
